FAERS Safety Report 6040007-4 (Version None)
Quarter: 2009Q1

REPORT INFORMATION
  Report Type: 
  Country: None (occurrence: None)
  Receive Date: 20090116
  Receipt Date: 20071114
  Transmission Date: 20090719
  Serious: No
  Sender: FDA-Public Use
  Company Number: US-BRISTOL-MYERS SQUIBB COMPANY-13983044

PATIENT
  Sex: Female
  Weight: 73 kg

DRUGS (4)
  1. ABILIFY [Suspect]
     Indication: SCHIZOAFFECTIVE DISORDER
     Dosage: STARTED 5MG APPROXIMATELY ONE AND A HALF - TWO YEARS AGO, DOSE INCREASED TO 10 MG APPROX 1 YEAR AGO.
  2. ABILIFY [Suspect]
     Indication: DEPRESSION
     Dosage: STARTED 5MG APPROXIMATELY ONE AND A HALF - TWO YEARS AGO, DOSE INCREASED TO 10 MG APPROX 1 YEAR AGO.
  3. EFFEXOR [Concomitant]
  4. METFORMIN [Concomitant]

REACTIONS (2)
  - BLOOD GLUCOSE FLUCTUATION [None]
  - HALLUCINATIONS, MIXED [None]
